FAERS Safety Report 25635422 (Version 2)
Quarter: 2025Q4

REPORT INFORMATION
  Report Type: Spontaneous
  Country: US (occurrence: US)
  Receive Date: 20250802
  Receipt Date: 20251108
  Transmission Date: 20260118
  Serious: Yes (Death, Hospitalization)
  Sender: JOHNSON AND JOHNSON
  Company Number: US-JNJFOC-20250731937

PATIENT
  Age: 61 Year
  Sex: Female

DRUGS (1)
  1. CARVYKTI [Suspect]
     Active Substance: CILTACABTAGENE AUTOLEUCEL
     Indication: Plasma cell myeloma
     Dates: start: 202501, end: 202501

REACTIONS (1)
  - Colitis [Fatal]
